FAERS Safety Report 22608689 (Version 2)
Quarter: 2023Q2

REPORT INFORMATION
  Report Type: Spontaneous
  Country: KR (occurrence: KR)
  Receive Date: 20230616
  Receipt Date: 20230628
  Transmission Date: 20230722
  Serious: No
  Sender: FDA-Public Use
  Company Number: KR-009507513-2306KOR005881

PATIENT
  Age: 89 Year
  Sex: Female

DRUGS (1)
  1. LAGEVRIO [Suspect]
     Active Substance: MOLNUPIRAVIR
     Route: 048

REACTIONS (3)
  - Faeces discoloured [Unknown]
  - Product use complaint [Unknown]
  - Wrong technique in product usage process [Unknown]
